FAERS Safety Report 11446028 (Version 1)
Quarter: 2015Q3

REPORT INFORMATION
  Report Type: Spontaneous
  Country: US (occurrence: US)
  Receive Date: 20150831
  Receipt Date: 20150831
  Transmission Date: 20151125
  Serious: No
  Sender: FDA-Public Use
  Company Number: US-ELI_LILLY_AND_COMPANY-US200808003281

PATIENT
  Age: 45 Year
  Sex: Male

DRUGS (3)
  1. ADVIL [Concomitant]
     Active Substance: IBUPROFEN
     Dosage: UNK, AS NEEDED
  2. CYMBALTA [Suspect]
     Active Substance: DULOXETINE HYDROCHLORIDE
     Indication: ANXIETY
     Dosage: 60 MG, DAILY (1/D)
  3. CYMBALTA [Suspect]
     Active Substance: DULOXETINE HYDROCHLORIDE
     Dosage: 45 MG, DAILY (1/D)

REACTIONS (15)
  - Muscle swelling [Not Recovered/Not Resolved]
  - Paraesthesia [Recovering/Resolving]
  - Joint swelling [Not Recovered/Not Resolved]
  - Back pain [Recovering/Resolving]
  - Drug withdrawal syndrome [Recovering/Resolving]
  - Diarrhoea [Recovering/Resolving]
  - Cognitive disorder [Recovering/Resolving]
  - Tendonitis [Recovering/Resolving]
  - Abasia [Recovering/Resolving]
  - Anger [Recovering/Resolving]
  - Vertigo [Recovering/Resolving]
  - Confusional state [Recovering/Resolving]
  - Pain [Not Recovered/Not Resolved]
  - Myalgia [Not Recovered/Not Resolved]
  - Decreased appetite [Not Recovered/Not Resolved]
